FAERS Safety Report 17416946 (Version 1)
Quarter: 2020Q1

REPORT INFORMATION
  Report Type: Spontaneous
  Country: US (occurrence: US)
  Receive Date: 20200214
  Receipt Date: 20200214
  Transmission Date: 20200409
  Serious: No
  Sender: FDA-Public Use
  Company Number: US-SA-2020SA035529

PATIENT
  Age: 63 Year
  Sex: Male

DRUGS (1)
  1. LANTUS SOLOSTAR [Suspect]
     Active Substance: INSULIN GLARGINE
     Dosage: 11 UNITS OF LANTUS IN THE MORNING AND 6 UNITS OF LANTUS IN THE EVENING
     Route: 065

REACTIONS (1)
  - Inappropriate schedule of product administration [Unknown]
